FAERS Safety Report 23363497 (Version 1)
Quarter: 2024Q1

REPORT INFORMATION
  Report Type: Spontaneous
  Country: US (occurrence: US)
  Receive Date: 20240103
  Receipt Date: 20240103
  Transmission Date: 20240409
  Serious: No
  Sender: FDA-Public Use
  Company Number: US-VISTAPHARM-2023-US-037597

PATIENT
  Age: 66 Year
  Sex: Female
  Weight: 68.49 kg

DRUGS (5)
  1. SUCRALFATE ORAL SUSPENSION [Suspect]
     Active Substance: SUCRALFATE
     Indication: Product used for unknown indication
     Dosage: TOOK 2 TEASPOONS DAILY ON AN EMPTY STOMACH
     Route: 048
     Dates: start: 20230801, end: 20231020
  2. PANTOPRAZOLE [Concomitant]
     Active Substance: PANTOPRAZOLE
  3. VITAMIN C [Concomitant]
     Active Substance: ASCORBIC ACID
  4. VITAMIN D [Concomitant]
     Active Substance: VITAMIN D NOS
  5. VITAMINS [Concomitant]
     Active Substance: VITAMINS

REACTIONS (1)
  - Abdominal discomfort [Recovered/Resolved]

NARRATIVE: CASE EVENT DATE: 20230815
